FAERS Safety Report 11181109 (Version 2)
Quarter: 2015Q2

REPORT INFORMATION
  Report Type: Spontaneous
  Country: US (occurrence: US)
  Receive Date: 20150611
  Receipt Date: 20150622
  Transmission Date: 20150821
  Serious: No
  Sender: FDA-Public Use
  Company Number: US-009507513-1506USA003235

PATIENT
  Age: 75 Year
  Sex: Female
  Weight: 104.31 kg

DRUGS (4)
  1. PREDNISONE. [Concomitant]
     Active Substance: PREDNISONE
     Dosage: 2 MG DAILY
  2. TOPROL XL [Concomitant]
     Active Substance: METOPROLOL SUCCINATE
     Dosage: UNK
  3. JANUVIA [Suspect]
     Active Substance: SITAGLIPTIN PHOSPHATE
     Indication: BLOOD CHOLESTEROL
     Dosage: 50 MG ONCE A DAY
     Route: 048
     Dates: start: 20140603
  4. LOTENSIN (CAPTOPRIL) [Concomitant]
     Dosage: UNK

REACTIONS (5)
  - Erythema [Unknown]
  - Pruritus [Unknown]
  - Drug administration error [Unknown]
  - Palpitations [Unknown]
  - Nodule [Unknown]

NARRATIVE: CASE EVENT DATE: 20140603
